FAERS Safety Report 5922175-5 (Version None)
Quarter: 2008Q4

REPORT INFORMATION
  Report Type: 
  Country: None (occurrence: None)
  Receive Date: 20081014
  Receipt Date: 20081007
  Transmission Date: 20090506
  Serious: Yes (Hospitalization)
  Sender: FDA-Public Use
  Company Number: 2008BI023709

PATIENT
  Age: 47 Year
  Sex: Male

DRUGS (9)
  1. TYSABRI [Suspect]
     Indication: MULTIPLE SCLEROSIS
     Dosage: 300 MG; QM; IV
     Route: 042
     Dates: start: 20061016, end: 20080825
  2. LEXAPRO [Concomitant]
  3. HYDROCODONE BITARTRATE [Concomitant]
  4. GABAPENTIN [Concomitant]
  5. CHLORDIAZEPOXIDE [Concomitant]
  6. KADIAN [Concomitant]
  7. METHYLIN [Concomitant]
  8. TRAMADOL HCL [Concomitant]
  9. BUTALBITAL [Concomitant]

REACTIONS (7)
  - CEREBRAL ATROPHY [None]
  - ENCEPHALITIS VIRAL [None]
  - HYPERSENSITIVITY [None]
  - JC VIRUS INFECTION [None]
  - MENTAL STATUS CHANGES [None]
  - PROGRESSIVE MULTIFOCAL LEUKOENCEPHALOPATHY [None]
  - PYREXIA [None]
